FAERS Safety Report 19510845 (Version 1)
Quarter: 2021Q3

REPORT INFORMATION
  Report Type: Spontaneous
  Country: US (occurrence: US)
  Receive Date: 20210708
  Receipt Date: 20210708
  Transmission Date: 20211014
  Serious: No
  Sender: FDA-Public Use
  Company Number: None

PATIENT
  Sex: Male

DRUGS (2)
  1. DROXIDOPA 200MG ZYDUS PHARMACEUTICALS(USA [Suspect]
     Active Substance: DROXIDOPA
     Indication: ORTHOSTATIC HYPOTENSION
     Route: 048
     Dates: start: 20210415
  2. DROXIDOPA 200MG ZYDUS PHARMACEUTICALS(USA [Suspect]
     Active Substance: DROXIDOPA
     Indication: AUTONOMIC NERVOUS SYSTEM IMBALANCE
     Route: 048
     Dates: start: 20210415

REACTIONS (2)
  - Product substitution issue [None]
  - Therapeutic product effect incomplete [None]
